FAERS Safety Report 6972501-3 (Version None)
Quarter: 2010Q3

REPORT INFORMATION
  Report Type: 
  Country: None (occurrence: None)
  Receive Date: 20100824
  Receipt Date: 20100429
  Transmission Date: 20110219
  Serious: No
  Sender: FDA-Public Use
  Company Number: 307899

PATIENT
  Age: 62 Year
  Sex: Male

DRUGS (2)
  1. VICTOZA [Suspect]
     Indication: TYPE 2 DIABETES MELLITUS
     Dosage: 0.6 U, QD, SUBCUTANEOUS ; 1.2, QD, SUBCUTANEOUS
     Route: 058
     Dates: start: 20100415
  2. JANUVIA [Concomitant]

REACTIONS (3)
  - ABDOMINAL DISTENSION [None]
  - BREATH ODOUR [None]
  - DYSGEUSIA [None]
